FAERS Safety Report 8517225-6 (Version None)
Quarter: 2012Q3

REPORT INFORMATION
  Report Type: 
  Country: None (occurrence: None)
  Receive Date: 20120718
  Receipt Date: 20120711
  Transmission Date: 20120928
  Serious: Yes (Other)
  Sender: FDA-Public Use
  Company Number: DE-PFIZER INC-2012167344

PATIENT
  Sex: Male

DRUGS (1)
  1. VORICONAZOLE [Suspect]
     Dosage: UNK

REACTIONS (1)
  - CANDIDIASIS [None]
